FAERS Safety Report 19741615 (Version 13)
Quarter: 2025Q3

REPORT INFORMATION
  Report Type: Report from Study
  Country: US (occurrence: US)
  Receive Date: 20210824
  Receipt Date: 20250917
  Transmission Date: 20251020
  Serious: Yes (Other)
  Sender: ABBVIE
  Company Number: US-ABBVIE-21K-163-4040150-00

PATIENT
  Age: 15 Year
  Sex: Female

DRUGS (27)
  1. RINVOQ [Suspect]
     Active Substance: UPADACITINIB
     Indication: Rheumatoid arthritis
     Route: 048
     Dates: start: 2019
  2. RINVOQ [Suspect]
     Active Substance: UPADACITINIB
     Indication: Rheumatoid arthritis
     Route: 048
     Dates: start: 20200408
  3. RINVOQ [Suspect]
     Active Substance: UPADACITINIB
     Indication: Rheumatoid arthritis
     Route: 048
  4. RINVOQ [Suspect]
     Active Substance: UPADACITINIB
     Indication: Rheumatoid arthritis
     Route: 048
  5. RINVOQ [Suspect]
     Active Substance: UPADACITINIB
     Indication: Rheumatoid arthritis
     Route: 048
  6. RINVOQ [Suspect]
     Active Substance: UPADACITINIB
     Indication: Rheumatoid arthritis
     Route: 048
     Dates: start: 20200129
  7. HYDROXYCHLOROQUINE [Concomitant]
     Active Substance: HYDROXYCHLOROQUINE
     Indication: Arthritis
  8. TRAMADOL [Concomitant]
     Active Substance: TRAMADOL
     Indication: Pain
  9. METOPROLOL [Concomitant]
     Active Substance: METOPROLOL
     Indication: Blood pressure measurement
  10. SULINDAC [Concomitant]
     Active Substance: SULINDAC
     Indication: Arthritis
  11. MONTELUKAST [Concomitant]
     Active Substance: MONTELUKAST
     Indication: Hypersensitivity
  12. PRAVASTATIN [Concomitant]
     Active Substance: PRAVASTATIN
     Indication: Blood cholesterol
  13. AMLODIPINE [Concomitant]
     Active Substance: AMLODIPINE BESYLATE
     Indication: Blood pressure measurement
  14. PANTOPRAZOLE [Concomitant]
     Active Substance: PANTOPRAZOLE
     Indication: Dyspepsia
  15. TORSEMIDE [Concomitant]
     Active Substance: TORSEMIDE
     Indication: Swelling
  16. METHOTREXATE [Concomitant]
     Active Substance: METHOTREXATE
     Indication: Rheumatoid arthritis
  17. AZELASTINE [Concomitant]
     Active Substance: AZELASTINE
     Indication: Hypersensitivity
  18. COENZYME Q10 [Concomitant]
     Active Substance: DIETARY SUPPLEMENT\UBIDECARENONE
     Indication: Supplementation therapy
  19. MUCINEX [Concomitant]
     Active Substance: GUAIFENESIN
     Indication: Productive cough
  20. FOLIC ACID [Concomitant]
     Active Substance: FOLIC ACID
     Indication: Folate deficiency
  21. VITAMIN D3 [Concomitant]
     Active Substance: CHOLECALCIFEROL
     Indication: Supplementation therapy
  22. ZINC [Concomitant]
     Active Substance: ZINC
     Indication: Supplementation therapy
  23. CALCIUM [Concomitant]
     Active Substance: CALCIUM
     Indication: Supplementation therapy
  24. GLUCOSAMINE [Concomitant]
     Active Substance: GLUCOSAMINE
     Indication: Arthritis
  25. IRON [Concomitant]
     Active Substance: IRON
     Indication: Anaemia
  26. ENULOSE [Concomitant]
     Active Substance: LACTULOSE
     Indication: Laxative supportive care
  27. JANSSEN COVID-19 VACCINE [Concomitant]
     Active Substance: AD26.COV2.S
     Indication: COVID-19 immunisation
     Route: 030
     Dates: start: 20210511, end: 20210511

REACTIONS (25)
  - Cataract [Not Recovered/Not Resolved]
  - Carpal tunnel syndrome [Unknown]
  - Post procedural infection [Recovering/Resolving]
  - Arthralgia [Not Recovered/Not Resolved]
  - Stomatitis [Recovering/Resolving]
  - Nerve compression [Recovering/Resolving]
  - Cubital tunnel syndrome [Recovering/Resolving]
  - Sciatica [Not Recovered/Not Resolved]
  - COVID-19 [Unknown]
  - Arthritis [Not Recovered/Not Resolved]
  - Back disorder [Unknown]
  - Pain in extremity [Not Recovered/Not Resolved]
  - Oral mucosal exfoliation [Not Recovered/Not Resolved]
  - Eye disorder [Not Recovered/Not Resolved]
  - Amblyopia [Unknown]
  - Nerve compression [Recovering/Resolving]
  - Localised infection [Recovering/Resolving]
  - Musculoskeletal disorder [Unknown]
  - Peripheral swelling [Not Recovered/Not Resolved]
  - Pain in extremity [Not Recovered/Not Resolved]
  - Back pain [Recovering/Resolving]
  - Neuralgia [Recovering/Resolving]
  - Gait disturbance [Recovering/Resolving]
  - Balance disorder [Recovering/Resolving]
  - Osteoarthritis [Unknown]

NARRATIVE: CASE EVENT DATE: 20210101
